FAERS Safety Report 20703096 (Version 1)
Quarter: 2022Q2

REPORT INFORMATION
  Report Type: Spontaneous
  Country: AU (occurrence: AU)
  Receive Date: 20220413
  Receipt Date: 20220413
  Transmission Date: 20220721
  Serious: Yes (Other)
  Sender: FDA-Public Use
  Company Number: AU-Atnahs Limited-ATNAHS20211107987

PATIENT

DRUGS (10)
  1. CALCITRIOL [Suspect]
     Active Substance: CALCITRIOL
     Indication: Hungry bone syndrome
     Dosage: 0.25 MICROGRAM
     Route: 048
     Dates: start: 201809
  2. CALCITRIOL [Suspect]
     Active Substance: CALCITRIOL
     Indication: Hyperparathyroidism
     Dosage: 2.25 MICROGRAM, QD
     Route: 065
     Dates: start: 2018
  3. CALCITRIOL [Suspect]
     Active Substance: CALCITRIOL
     Indication: Haemodialysis
     Dosage: 8 MICROGRAM, QD
     Route: 065
     Dates: start: 2018
  4. CALCITRIOL [Suspect]
     Active Substance: CALCITRIOL
     Dosage: 1.5 MICROGRAM, QD (THREE MONTHS POST-PARATHYROIDECTOMY)
     Route: 065
     Dates: start: 2018, end: 202002
  5. CALCIUM [Suspect]
     Active Substance: CALCIUM
     Indication: Hyperparathyroidism
     Dosage: UNK
     Route: 042
  6. CALCIUM [Suspect]
     Active Substance: CALCIUM
     Indication: Hungry bone syndrome
  7. CALCIUM CARBONATE [Suspect]
     Active Substance: CALCIUM CARBONATE
     Indication: Hyperparathyroidism
     Dosage: 9600 MG
     Route: 065
  8. CALCIUM CARBONATE [Suspect]
     Active Substance: CALCIUM CARBONATE
     Indication: Hungry bone syndrome
     Dosage: 600 MILLIGRAM
     Route: 065
  9. SEVELAMER [Concomitant]
     Active Substance: SEVELAMER
     Indication: Product used for unknown indication
     Dosage: UNK
     Route: 065
     Dates: end: 201809
  10. RISEDRONATE SODIUM [Concomitant]
     Active Substance: RISEDRONATE SODIUM
     Indication: Product used for unknown indication
     Dosage: UNK
     Route: 065
     Dates: end: 201809

REACTIONS (2)
  - Aortic arteriosclerosis [Not Recovered/Not Resolved]
  - Off label use [Unknown]

NARRATIVE: CASE EVENT DATE: 20200301
